FAERS Safety Report 4548920-1 (Version None)
Quarter: 2004Q4

REPORT INFORMATION
  Report Type: 
  Country: None (occurrence: None)
  Receive Date: 20041227
  Receipt Date: 20041118
  Transmission Date: 20050328
  Serious: No
  Sender: FDA-Public Use
  Company Number: 04P-163-0281240-00

PATIENT
  Age: 74 Year
  Sex: Male
  Weight: 79.8331 kg

DRUGS (4)
  1. HUMIRA [Suspect]
     Indication: RHEUMATOID ARTHRITIS
     Dosage: 40 MG, 1 IN 2 WK, SUBCUTANEOUS
     Route: 058
     Dates: start: 20040601
  2. GLIMEPIRIDE [Concomitant]
  3. ENALAPRIL [Concomitant]
  4. PREDNISONE [Concomitant]

REACTIONS (2)
  - ARTHROPOD STING [None]
  - INJECTION SITE PRURITUS [None]
